FAERS Safety Report 7814954-4 (Version None)
Quarter: 2011Q4

REPORT INFORMATION
  Report Type: 
  Country: None (occurrence: None)
  Receive Date: 20111013
  Receipt Date: 20111013
  Transmission Date: 20120403
  Serious: Yes (Life-Threatening, Other)
  Sender: FDA-Public Use
  Company Number: None

PATIENT
  Age: 46 Year
  Sex: Female
  Weight: 71.6683 kg

DRUGS (1)
  1. CELEXA [Suspect]
     Indication: DEPRESSION
     Dosage: 40MG 1X DAY
     Dates: start: 20000101, end: 20030101

REACTIONS (6)
  - CONCUSSION [None]
  - CARDIAC DISORDER [None]
  - SUTURE INSERTION [None]
  - TACHYCARDIA [None]
  - DIZZINESS [None]
  - SYNCOPE [None]
